FAERS Safety Report 8049106-9 (Version None)
Quarter: 2011Q4

REPORT INFORMATION
  Report Type: 
  Country: None (occurrence: None)
  Receive Date: 20111209
  Receipt Date: 20110908
  Transmission Date: 20120403
  Serious: No
  Sender: FDA-Public Use
  Company Number: 2011SP042525

PATIENT
  Age: 60 Year
  Sex: Male
  Weight: 83.9154 kg

DRUGS (5)
  1. VICTRELIS [Suspect]
     Indication: HEPATITIS C
     Dosage: 8MG; TID; PO
     Route: 048
     Dates: start: 20110825
  2. PEGASYS [Suspect]
     Indication: PRODUCT USED FOR UNKNOWN INDICATION
  3. RIBAVIRIN [Suspect]
     Indication: PRODUCT USED FOR UNKNOWN INDICATION
  4. FLEXERIL [Concomitant]
  5. VICODIN [Concomitant]

REACTIONS (6)
  - DYSGEUSIA [None]
  - HYPERCHLORHYDRIA [None]
  - RASH [None]
  - DEPRESSION [None]
  - ABDOMINAL DISCOMFORT [None]
  - IRRITABILITY [None]
